FAERS Safety Report 4323511-6 (Version None)
Quarter: 2004Q1

REPORT INFORMATION
  Report Type: 
  Country: None (occurrence: None)
  Receive Date: 20040322
  Receipt Date: 20040308
  Transmission Date: 20041129
  Serious: Yes (Hospitalization)
  Sender: FDA-Public Use
  Company Number: 04P-167-0252999-00

PATIENT
  Age: 20 Year
  Sex: Female
  Weight: 90 kg

DRUGS (1)
  1. MERIDIA [Suspect]
     Indication: OBESITY
     Dosage: 1 IN 1 D, PER ORAL
     Route: 048
     Dates: start: 20031105, end: 20040224

REACTIONS (3)
  - ALCOHOL INTOLERANCE [None]
  - CIRCULATORY COLLAPSE [None]
  - LOSS OF CONSCIOUSNESS [None]
